FAERS Safety Report 13158482 (Version 3)
Quarter: 2017Q1

REPORT INFORMATION
  Report Type: Report from Study
  Country: US (occurrence: US)
  Receive Date: 20170127
  Receipt Date: 20170214
  Transmission Date: 20170428
  Serious: Yes (Death, Hospitalization, Other)
  Sender: FDA-Public Use
  Company Number: US-RETROPHIN, INC.-2017RTN00001

PATIENT
  Age: 5 Month
  Sex: Female

DRUGS (5)
  1. CHOLBAM [Suspect]
     Active Substance: CHOLIC ACID
     Indication: LIVER DISORDER
  2. ACTIGALL [Concomitant]
     Active Substance: URSODIOL
  3. AQUADEKS [Concomitant]
     Active Substance: MINERALS\VITAMINS
  4. CHOLBAM [Suspect]
     Active Substance: CHOLIC ACID
     Indication: INBORN ERROR OF BILIRUBIN METABOLISM
     Dosage: 50 MG, 1X/DAY
     Route: 048
     Dates: start: 20161219
  5. PROTONIX [Concomitant]
     Active Substance: PANTOPRAZOLE SODIUM

REACTIONS (6)
  - Internal haemorrhage [Unknown]
  - International normalised ratio increased [Unknown]
  - Death [Fatal]
  - Liver disorder [Unknown]
  - Gravitational oedema [Unknown]
  - Ocular icterus [Recovering/Resolving]

NARRATIVE: CASE EVENT DATE: 20170109
